FAERS Safety Report 12349450 (Version 1)
Quarter: 2016Q2

REPORT INFORMATION
  Report Type: Spontaneous
  Country: US (occurrence: US)
  Receive Date: 20160510
  Receipt Date: 20160510
  Transmission Date: 20160815
  Serious: No
  Sender: FDA-Public Use
  Company Number: US-TEVA-644505USA

PATIENT
  Age: 73 Year
  Sex: Male
  Weight: 69.01 kg

DRUGS (3)
  1. LUNESTA [Concomitant]
     Active Substance: ESZOPICLONE
     Indication: SLEEP DISORDER
     Dosage: 3 MILLIGRAM DAILY;
     Route: 048
  2. CELECOXIB. [Suspect]
     Active Substance: CELECOXIB
     Indication: OSTEOARTHRITIS
     Dosage: 200 MILLIGRAM DAILY;
     Route: 048
     Dates: start: 201303
  3. DOXAZOSIN [Concomitant]
     Active Substance: DOXAZOSIN\DOXAZOSIN MESYLATE
     Indication: BLOOD PRESSURE MEASUREMENT
     Dosage: 4 MILLIGRAM DAILY;
     Route: 048

REACTIONS (4)
  - Feeling abnormal [Not Recovered/Not Resolved]
  - Nervous system disorder [Not Recovered/Not Resolved]
  - Burning sensation [Not Recovered/Not Resolved]
  - Skin discomfort [Not Recovered/Not Resolved]

NARRATIVE: CASE EVENT DATE: 201602
